FAERS Safety Report 9254507 (Version 1)
Quarter: 2013Q1

REPORT INFORMATION
  Report Type: Spontaneous
  Country: US (occurrence: None)
  Receive Date: 20121210
  Receipt Date: 20121210
  Transmission Date: 20140127
  Serious: No
  Sender: FDA-Public Use
  Company Number: 1210USA010764

PATIENT
  Age: 89 Year
  Sex: Female

DRUGS (1)
  1. ZIOPTAN [Suspect]
     Indication: MACULAR DEGENERATION
     Dosage: 1 DROP, QD, OPHTHALMIC
     Dates: start: 20121020

REACTIONS (4)
  - Visual acuity reduced [None]
  - Eye pain [None]
  - Ocular hyperaemia [None]
  - Photophobia [None]
